FAERS Safety Report 24628508 (Version 2)
Quarter: 2024Q4

REPORT INFORMATION
  Report Type: Spontaneous
  Country: US (occurrence: US)
  Receive Date: 20241117
  Receipt Date: 20241128
  Transmission Date: 20250115
  Serious: Yes (Other)
  Sender: CSL BEHRING
  Company Number: US-BEH-2024185300

PATIENT

DRUGS (1)
  1. HUMAN RHO(D) IMMUNE GLOBULIN [Suspect]
     Active Substance: HUMAN RHO(D) IMMUNE GLOBULIN
     Indication: Alloimmunisation
     Dosage: UNK
     Route: 064

REACTIONS (2)
  - Neonatal respiratory depression [Recovered/Resolved]
  - Foetal exposure during pregnancy [Unknown]
